FAERS Safety Report 4576327-X (Version None)
Quarter: 2005Q1

REPORT INFORMATION
  Report Type: 
  Country: None (occurrence: None)
  Receive Date: 20050207
  Receipt Date: 20050124
  Transmission Date: 20050727
  Serious: Yes (Death)
  Sender: FDA-Public Use
  Company Number: 2005019595

PATIENT
  Age: 53 Year
  Sex: Female

DRUGS (5)
  1. MEDROL [Suspect]
     Indication: ILL-DEFINED DISORDER
     Dosage: 64 MG (32 MG, 1 IN 1 D), ORAL
     Route: 048
     Dates: start: 20030315
  2. ACETYLCYSTEINE [Suspect]
     Indication: ILL-DEFINED DISORDER
     Dosage: 600 MG (200 MG, 3 IN 1 D), ORAL
     Route: 048
  3. LAMOTRIGINE [Suspect]
     Indication: ILL-DEFINED DISORDER
     Dosage: 400 MG (200 MG, 2 IN 1 D), ORAL
     Route: 048
  4. CLOBAZAM (CLOBAZAM) [Suspect]
     Indication: ILL-DEFINED DISORDER
     Dosage: 20 MG (10 MG, 2 IN 1 D), ORAL
     Route: 048
  5. OMEPRAZOLE [Suspect]
     Indication: ILL-DEFINED DISORDER
     Dosage: 20 MG (20 MG, 1 IN 1 D), ORAL
     Route: 048

REACTIONS (6)
  - ACUTE RESPIRATORY DISTRESS SYNDROME [None]
  - DIABETES MELLITUS INADEQUATE CONTROL [None]
  - IATROGENIC INJURY [None]
  - INTERSTITIAL LUNG DISEASE [None]
  - PNEUMOCYSTIS JIROVECI INFECTION [None]
  - RESPIRATORY FAILURE [None]
